FAERS Safety Report 5360208-8 (Version None)
Quarter: 2007Q2

REPORT INFORMATION
  Report Type: 
  Country: None (occurrence: None)
  Receive Date: 20070618
  Receipt Date: 20070607
  Transmission Date: 20071010
  Serious: Yes (Hospitalization)
  Sender: FDA-Public Use
  Company Number: PHHO2006US04977

PATIENT
  Age: 69 Year
  Sex: Male
  Weight: 93.9 kg

DRUGS (3)
  1. LOTREL [Suspect]
     Indication: HYPERTENSION
     Dosage: LEVEL 1
     Route: 048
     Dates: start: 20040311
  2. LOTREL [Suspect]
     Dosage: LEVEL 2
     Route: 048
  3. LOTREL [Suspect]
     Dosage: UNKNOWN
     Route: 048

REACTIONS (7)
  - ARTHRITIS [None]
  - BACK PAIN [None]
  - CONCOMITANT DISEASE PROGRESSION [None]
  - DIZZINESS [None]
  - HYPERHIDROSIS [None]
  - NAUSEA [None]
  - SURGERY [None]
